FAERS Safety Report 6910121-7 (Version None)
Quarter: 2010Q3

REPORT INFORMATION
  Report Type: 
  Country: None (occurrence: None)
  Receive Date: 20100806
  Receipt Date: 20100728
  Transmission Date: 20110219
  Serious: Yes (Other)
  Sender: FDA-Public Use
  Company Number: AU-JNJFOC-20100607195

PATIENT
  Age: 17 Year
  Sex: Female

DRUGS (3)
  1. RISPERIDONE [Suspect]
     Indication: SCHIZOPHRENIA
     Route: 065
  2. BENZTROPINE MESYLATE [Suspect]
     Indication: SCHIZOPHRENIA
     Route: 065
  3. FLUPHENAZINE DECANOATE [Suspect]
     Indication: SCHIZOPHRENIA
     Route: 065

REACTIONS (7)
  - BRADYKINESIA [None]
  - CATATONIA [None]
  - COGWHEEL RIGIDITY [None]
  - DYSTONIA [None]
  - PARKINSONIAN GAIT [None]
  - SALIVARY HYPERSECRETION [None]
  - TREMOR [None]
